FAERS Safety Report 6966752-1 (Version None)
Quarter: 2010Q3

REPORT INFORMATION
  Report Type: 
  Country: None (occurrence: None)
  Receive Date: 20100906
  Receipt Date: 20100823
  Transmission Date: 20110219
  Serious: Yes (Other)
  Sender: FDA-Public Use
  Company Number: US-ELI_LILLY_AND_COMPANY-US201008007699

PATIENT
  Sex: Female

DRUGS (2)
  1. EFFIENT [Suspect]
     Indication: PERIPHERAL VASCULAR DISORDER
     Dosage: 60 MG, OTHER
  2. EFFIENT [Suspect]
     Dosage: 10 MG, UNKNOWN

REACTIONS (2)
  - OFF LABEL USE [None]
  - THROMBOSIS [None]
